FAERS Safety Report 9165171 (Version 1)
Quarter: 2013Q1

REPORT INFORMATION
  Report Type: Spontaneous
  Country: US (occurrence: US)
  Receive Date: 20130315
  Receipt Date: 20130315
  Transmission Date: 20140127
  Serious: Yes (Other)
  Sender: FDA-Public Use
  Company Number: US-ELI_LILLY_AND_COMPANY-US201303002514

PATIENT
  Sex: Female

DRUGS (4)
  1. HUMALOG LISPRO [Suspect]
     Dosage: UNK
     Dates: start: 20120301, end: 20120302
  2. NOVOLOG [Concomitant]
  3. LANTUS [Concomitant]
  4. LEVEMIR [Concomitant]

REACTIONS (3)
  - Hepatitis C [Not Recovered/Not Resolved]
  - Suspected transmission of an infectious agent via product [Unknown]
  - Accidental exposure to product [Unknown]
